FAERS Safety Report 25791674 (Version 1)
Quarter: 2025Q3

REPORT INFORMATION
  Report Type: Spontaneous
  Country: US (occurrence: US)
  Receive Date: 20250911
  Receipt Date: 20250911
  Transmission Date: 20251021
  Serious: No
  Sender: MYLAN
  Company Number: US-MYLANLABS-2025M1075817

PATIENT
  Age: 72 Year
  Sex: Male

DRUGS (4)
  1. ARMODAFINIL [Suspect]
     Active Substance: ARMODAFINIL
     Indication: Fatigue
     Dosage: 1 DOSAGE FORM, QD (1 TABLET DAILY)
     Dates: start: 202508
  2. ARMODAFINIL [Suspect]
     Active Substance: ARMODAFINIL
     Dosage: 1 DOSAGE FORM, QD (1 TABLET DAILY)
     Route: 048
     Dates: start: 202508
  3. ARMODAFINIL [Suspect]
     Active Substance: ARMODAFINIL
     Dosage: 1 DOSAGE FORM, QD (1 TABLET DAILY)
     Route: 048
     Dates: start: 202508
  4. ARMODAFINIL [Suspect]
     Active Substance: ARMODAFINIL
     Dosage: 1 DOSAGE FORM, QD (1 TABLET DAILY)
     Dates: start: 202508

REACTIONS (5)
  - Tachycardia [Not Recovered/Not Resolved]
  - Bruxism [Recovered/Resolved]
  - Nausea [Recovered/Resolved]
  - Vomiting [Unknown]
  - Off label use [Unknown]

NARRATIVE: CASE EVENT DATE: 20250801
